FAERS Safety Report 21574653 (Version 2)
Quarter: 2022Q4

REPORT INFORMATION
  Report Type: Spontaneous
  Country: IT (occurrence: IT)
  Receive Date: 20221109
  Receipt Date: 20221118
  Transmission Date: 20230112
  Serious: Yes (Hospitalization)
  Sender: FDA-Public Use
  Company Number: None

PATIENT
  Age: 38 Year
  Sex: Male

DRUGS (9)
  1. HALOPERIDOL [Suspect]
     Active Substance: HALOPERIDOL
     Indication: Psychomotor hyperactivity
     Route: 042
     Dates: start: 20220725, end: 20220726
  2. HALOPERIDOL [Suspect]
     Active Substance: HALOPERIDOL
     Dosage: 3 DROPS AT 9 AM, 5 DROPS AT 12PM AND 5 DROPS AT 8.45PM, 5 DROPS AT 05.45AM
     Route: 048
     Dates: start: 20220727, end: 20220728
  3. LATTULAC EPS [Concomitant]
     Route: 054
  4. FUROSEMIDE [Concomitant]
     Active Substance: FUROSEMIDE
     Route: 042
     Dates: start: 20220727, end: 20220728
  5. EN [Concomitant]
     Active Substance: DELORAZEPAM
     Route: 042
     Dates: start: 20220727, end: 20220727
  6. CANRENOATE POTASSIUM [Concomitant]
     Active Substance: CANRENOATE POTASSIUM
     Dates: start: 20220727, end: 20220727
  7. PANTOPRAZOLO SUN [Concomitant]
     Route: 042
     Dates: start: 20220727, end: 20220727
  8. AMPICILLINA BIOPHARMA [Concomitant]
     Route: 042
     Dates: start: 20220727, end: 20220728
  9. KONAKION [Concomitant]
     Active Substance: PHYTONADIONE
     Route: 042
     Dates: start: 20220727, end: 20220728

REACTIONS (2)
  - Electrocardiogram QT prolonged [Recovered/Resolved]
  - Medication error [Recovered/Resolved]

NARRATIVE: CASE EVENT DATE: 20220727
